FAERS Safety Report 14939387 (Version 1)
Quarter: 2018Q2

REPORT INFORMATION
  Report Type: Spontaneous
  Country: US (occurrence: US)
  Receive Date: 20180507
  Receipt Date: 20180507
  Transmission Date: 20180711
  Serious: Yes (Other)
  Sender: FDA-Public Use
  Company Number: None

PATIENT
  Age: 47 Year
  Sex: Female
  Weight: 62.7 kg

DRUGS (15)
  1. ROCURONIUM [Suspect]
     Active Substance: ROCURONIUM BROMIDE
     Indication: ENDOTRACHEAL INTUBATION
     Dosage: ?          OTHER FREQUENCY:ONCE;?
     Route: 042
  2. FENTANYL. [Concomitant]
     Active Substance: FENTANYL
  3. GLYCOPYRROLATE. [Concomitant]
     Active Substance: GLYCOPYRROLATE
  4. HYDROMORPHONE [Concomitant]
     Active Substance: HYDROMORPHONE
  5. NEOSTIGMINE [Concomitant]
     Active Substance: NEOSTIGMINE
  6. PROFOLOL [Concomitant]
  7. MECLIZINE [Concomitant]
     Active Substance: MECLIZINE HYDROCHLORIDE
  8. MIDAZOLAM [Concomitant]
     Active Substance: MIDAZOLAM HYDROCHLORIDE
  9. ACETAMINOPHEN. [Concomitant]
     Active Substance: ACETAMINOPHEN
  10. LABETOL [Concomitant]
  11. MEPERIDINE [Concomitant]
     Active Substance: MEPERIDINE
  12. CEFUROXIME. [Concomitant]
     Active Substance: CEFUROXIME
  13. EPHEDRINE. [Concomitant]
     Active Substance: EPHEDRINE
  14. PHYSOSTIGMINE [Concomitant]
     Active Substance: PHYSOSTIGMINE
  15. RANITIDINE. [Concomitant]
     Active Substance: RANITIDINE

REACTIONS (2)
  - Hyperthermia malignant [None]
  - Chills [None]

NARRATIVE: CASE EVENT DATE: 20171011
